FAERS Safety Report 24188106 (Version 1)
Quarter: 2024Q3

REPORT INFORMATION
  Report Type: Spontaneous
  Country: US (occurrence: US)
  Receive Date: 20240808
  Receipt Date: 20240808
  Transmission Date: 20241016
  Serious: No
  Sender: ELI LILLY AND CO
  Company Number: US-ELI_LILLY_AND_COMPANY-US202408002737

PATIENT
  Age: 66 Year
  Sex: Female

DRUGS (1)
  1. STRATTERA [Suspect]
     Active Substance: ATOMOXETINE HYDROCHLORIDE
     Indication: Attention deficit hyperactivity disorder
     Dosage: 60 MG, UNKNOWN
     Route: 048
     Dates: start: 2015

REACTIONS (3)
  - Disturbance in attention [Unknown]
  - Change in sustained attention [Unknown]
  - Anger [Unknown]
